FAERS Safety Report 25445307 (Version 1)
Quarter: 2025Q2

REPORT INFORMATION
  Report Type: Spontaneous
  Country: US (occurrence: None)
  Receive Date: 20250616
  Receipt Date: 20250616
  Transmission Date: 20250717
  Serious: Yes (Hospitalization, Disabling, Other)
  Sender: FDA-CTU
  Company Number: None

PATIENT
  Age: 35 Year
  Sex: Female
  Weight: 67.5 kg

DRUGS (12)
  1. ZOLOFT [Suspect]
     Active Substance: SERTRALINE HYDROCHLORIDE
     Indication: Perinatal depression
     Route: 048
     Dates: start: 20120601, end: 20130415
  2. PROZAC [Suspect]
     Active Substance: FLUOXETINE HYDROCHLORIDE
  3. LEVOTHYROXINE [Concomitant]
     Active Substance: LEVOTHYROXINE
  4. MIRTAZAPINE [Concomitant]
     Active Substance: MIRTAZAPINE
  5. VITAMINS [Concomitant]
     Active Substance: VITAMINS
  6. Betaine HCl [Concomitant]
  7. Antioxidants [Concomitant]
  8. IODINE [Concomitant]
     Active Substance: IODINE
  9. B vitamins with CoQ10 [Concomitant]
  10. FISH OIL\OMEGA-3 FATTY ACIDS [Concomitant]
     Active Substance: FISH OIL\OMEGA-3 FATTY ACIDS
  11. Glycinate [Concomitant]
  12. VITAMIN D [Concomitant]
     Active Substance: VITAMIN D NOS

REACTIONS (11)
  - Panic attack [None]
  - Anxiety [None]
  - Insomnia [None]
  - Nausea [None]
  - Restless legs syndrome [None]
  - Feeling abnormal [None]
  - Headache [None]
  - Electric shock sensation [None]
  - Withdrawal syndrome [None]
  - Middle insomnia [None]
  - Influenza like illness [None]

NARRATIVE: CASE EVENT DATE: 20120601
